FAERS Safety Report 25424351 (Version 2)
Quarter: 2025Q3

REPORT INFORMATION
  Report Type: Spontaneous
  Country: US (occurrence: US)
  Receive Date: 20250611
  Receipt Date: 20250918
  Transmission Date: 20251020
  Serious: Yes (Hospitalization, Other)
  Sender: SANOFI AVENTIS
  Company Number: US-SA-2025SA163600

PATIENT
  Age: 48 Year
  Sex: Female

DRUGS (83)
  1. REZUROCK [Suspect]
     Active Substance: BELUMOSUDIL
     Indication: Chronic graft versus host disease
     Dosage: 200 MG, BID
     Route: 048
  2. REZUROCK [Suspect]
     Active Substance: BELUMOSUDIL
     Indication: Acute myeloid leukaemia
  3. ACYCLOVIR [Concomitant]
     Active Substance: ACYCLOVIR
  4. ACYCLOVIR [Concomitant]
     Active Substance: ACYCLOVIR
  5. ADVAIR HFA [Concomitant]
     Active Substance: FLUTICASONE PROPIONATE\SALMETEROL XINAFOATE
  6. ADVAIR HFA [Concomitant]
     Active Substance: FLUTICASONE PROPIONATE\SALMETEROL XINAFOATE
  7. ALBUTEROL [Concomitant]
     Active Substance: ALBUTEROL
  8. ALLOPURINOL [Concomitant]
     Active Substance: ALLOPURINOL
  9. ALLOPURINOL [Concomitant]
     Active Substance: ALLOPURINOL
  10. AMOXICILLIN [Concomitant]
     Active Substance: AMOXICILLIN
  11. AMOXICILLIN [Concomitant]
     Active Substance: AMOXICILLIN
  12. ATIVAN [Concomitant]
     Active Substance: LORAZEPAM
  13. BACTRIM [Concomitant]
     Active Substance: SULFAMETHOXAZOLE\TRIMETHOPRIM
  14. BENADRYL [Concomitant]
     Active Substance: DIPHENHYDRAMINE HYDROCHLORIDE
  15. BENZONATATE [Concomitant]
     Active Substance: BENZONATATE
  16. BUDESONIDE [Concomitant]
     Active Substance: BUDESONIDE
  17. CALAN [Concomitant]
     Active Substance: VERAPAMIL HYDROCHLORIDE
  18. CALCIUM CARBONATE [Concomitant]
     Active Substance: CALCIUM CARBONATE
  19. CEFDINIR [Concomitant]
     Active Substance: CEFDINIR
  20. CELLCEPT [Concomitant]
     Active Substance: MYCOPHENOLATE MOFETIL
  21. CLOBETASOL [Concomitant]
     Active Substance: CLOBETASOL
  22. COLACE [Concomitant]
     Active Substance: DOCUSATE SODIUM
  23. CRESEMBA [Concomitant]
     Active Substance: ISAVUCONAZONIUM SULFATE
  24. VITAMIN C [Concomitant]
     Active Substance: ASCORBIC ACID
  25. CYMBALTA [Concomitant]
     Active Substance: DULOXETINE HYDROCHLORIDE
  26. VITAMINS [Concomitant]
     Active Substance: VITAMINS
  27. DESONIDE [Concomitant]
     Active Substance: DESONIDE
  28. DEXAMETHASONE [Concomitant]
     Active Substance: DEXAMETHASONE
  29. DULOXETINE [Concomitant]
     Active Substance: DULOXETINE
  30. ELIQUIS [Concomitant]
     Active Substance: APIXABAN
  31. ENOXAPARIN [Concomitant]
     Active Substance: ENOXAPARIN
  32. ESTRACE [Concomitant]
     Active Substance: ESTRADIOL
  33. FLUCONAZOLE [Concomitant]
     Active Substance: FLUCONAZOLE
  34. FLUOCINONIDE [Concomitant]
     Active Substance: FLUOCINONIDE
  35. FOLIC ACID [Concomitant]
     Active Substance: FOLIC ACID
  36. GABAPENTIN [Concomitant]
     Active Substance: GABAPENTIN
  37. GRANISETRON [Concomitant]
     Active Substance: GRANISETRON
  38. HYDROXYZINE [Concomitant]
     Active Substance: HYDROXYZINE HYDROCHLORIDE
  39. ALBUTEROL\IPRATROPIUM [Concomitant]
     Active Substance: ALBUTEROL\IPRATROPIUM
  40. JAKAFI [Concomitant]
     Active Substance: RUXOLITINIB
  41. VITAMIN D3 [Concomitant]
     Active Substance: CHOLECALCIFEROL
  42. LASIX [Concomitant]
     Active Substance: FUROSEMIDE
  43. LEVOFLOXACIN [Concomitant]
     Active Substance: LEVOFLOXACIN
  44. LEVOTHYROXINE [Concomitant]
     Active Substance: LEVOTHYROXINE
  45. LIDOCAINE\PRILOCAINE [Concomitant]
     Active Substance: LIDOCAINE\PRILOCAINE
  46. LOKELMA [Concomitant]
     Active Substance: SODIUM ZIRCONIUM CYCLOSILICATE
  47. LOMOTIL [Concomitant]
     Active Substance: ATROPINE SULFATE\DIPHENOXYLATE HYDROCHLORIDE
  48. LOPERAMIDE [Concomitant]
     Active Substance: LOPERAMIDE
  49. LUPRON [Concomitant]
     Active Substance: LEUPROLIDE ACETATE
  50. LYRICA [Concomitant]
     Active Substance: PREGABALIN
  51. MAALOX ANTACID [Concomitant]
     Active Substance: ALUMINUM HYDROXIDE\DIMETHICONE\MAGNESIUM HYDROXIDE
  52. MAGNESIUM [Concomitant]
     Active Substance: MAGNESIUM
  53. MELATONIN [Concomitant]
     Active Substance: MELATONIN
  54. MONTELUKAST [Concomitant]
     Active Substance: MONTELUKAST
  55. MS CONTIN [Concomitant]
     Active Substance: MORPHINE SULFATE
  56. MUCINEX [Concomitant]
     Active Substance: GUAIFENESIN
  57. MYCOPHENOLIC ACID [Concomitant]
     Active Substance: MYCOPHENOLIC ACID
  58. NARCAN [Concomitant]
     Active Substance: NALOXONE HYDROCHLORIDE
  59. NYSTATIN [Concomitant]
     Active Substance: NYSTATIN
  60. OXYCODONE [Concomitant]
     Active Substance: OXYCODONE
  61. PENICILLIN V [Concomitant]
     Active Substance: PENICILLIN V
  62. PENTAMIDINE [Concomitant]
     Active Substance: PENTAMIDINE
     Route: 055
  63. POSACONAZOLE [Concomitant]
     Active Substance: POSACONAZOLE
  64. POTASSIUM CHLORIDE [Concomitant]
     Active Substance: POTASSIUM CHLORIDE
  65. PREDNISONE [Concomitant]
     Active Substance: PREDNISONE
  66. PREMARIN [Concomitant]
     Active Substance: ESTROGENS, CONJUGATED
  67. PREVYMIS [Concomitant]
     Active Substance: LETERMOVIR
  68. RAPAMUNE [Concomitant]
     Active Substance: SIROLIMUS
  69. RESTASIS [Concomitant]
     Active Substance: CYCLOSPORINE
  70. ROBITUSSIN (GUAIFENESIN) [Concomitant]
     Active Substance: GUAIFENESIN
  71. SIROLIMUS [Concomitant]
     Active Substance: SIROLIMUS
  72. SODIUM CHLORIDE [Concomitant]
     Active Substance: SODIUM CHLORIDE
  73. TACROLIMUS [Concomitant]
     Active Substance: TACROLIMUS
  74. TOBRAMYCIN AND DEXAMETHASONE [Concomitant]
     Active Substance: DEXAMETHASONE\TOBRAMYCIN
  75. TRAZODONE [Concomitant]
     Active Substance: TRAZODONE HYDROCHLORIDE
  76. URSODIOL [Concomitant]
     Active Substance: URSODIOL
  77. VITAMIN D2 [Concomitant]
     Active Substance: ERGOCALCIFEROL
  78. ZYRTEC [Concomitant]
     Active Substance: CETIRIZINE HYDROCHLORIDE
  79. VITAMINS [Concomitant]
     Active Substance: VITAMINS
  80. REFRESH PLUS [Concomitant]
     Active Substance: CARBOXYMETHYLCELLULOSE SODIUM
  81. ORAMAGIC PLUS [Concomitant]
  82. PANTOPRAZOLE [Suspect]
     Active Substance: PANTOPRAZOLE
  83. VALTREX [Suspect]
     Active Substance: VALACYCLOVIR HYDROCHLORIDE

REACTIONS (2)
  - Pneumonia [Recovering/Resolving]
  - Product use in unapproved indication [Unknown]
